FAERS Safety Report 5742616-6 (Version None)
Quarter: 2008Q2

REPORT INFORMATION
  Report Type: 
  Country: None (occurrence: None)
  Receive Date: 20080519
  Receipt Date: 20080509
  Transmission Date: 20081010
  Serious: Yes (Other)
  Sender: FDA-Public Use
  Company Number: US-AVENTIS-200811054EU

PATIENT
  Age: 58 Year
  Sex: Male
  Weight: 117 kg

DRUGS (4)
  1. LOVENOX [Suspect]
     Indication: DRUG USE FOR UNKNOWN INDICATION
     Dosage: DOSE: UNK
     Dates: start: 20070920
  2. INVESTIGATIONAL DRUG [Concomitant]
     Route: 042
     Dates: start: 20070830, end: 20080215
  3. GEMCITABINE [Concomitant]
     Route: 042
     Dates: start: 20070920, end: 20080214
  4. EFFEXOR [Concomitant]
     Dosage: DOSE: UNK
     Route: 048
     Dates: start: 20060713

REACTIONS (2)
  - CELLULITIS [None]
  - PYREXIA [None]
